FAERS Safety Report 6743368-3 (Version None)
Quarter: 2010Q2

REPORT INFORMATION
  Report Type: 
  Country: None (occurrence: None)
  Receive Date: 20100527
  Receipt Date: 20100524
  Transmission Date: 20101027
  Serious: Yes (Other)
  Sender: FDA-Public Use
  Company Number: US-BRISTOL-MYERS SQUIBB COMPANY-15118938

PATIENT
  Sex: Male

DRUGS (1)
  1. COUMADIN [Suspect]
     Dosage: 6MG DAILY FOR 6 DAYS AND 3MG FOR ONE DAY FOR SEVERAL YEARS

REACTIONS (2)
  - OEDEMA PERIPHERAL [None]
  - THROMBOSIS [None]
